FAERS Safety Report 6556800-5 (Version None)
Quarter: 2010Q1

REPORT INFORMATION
  Report Type: 
  Country: None (occurrence: None)
  Receive Date: 20100128
  Receipt Date: 20100118
  Transmission Date: 20100710
  Serious: Yes (Other)
  Sender: FDA-Public Use
  Company Number: PHHY2010AT03464

PATIENT
  Age: 35 Year
  Sex: Male

DRUGS (3)
  1. CYCLOSPORINE [Suspect]
     Indication: RENAL TRANSPLANT
  2. AZATHIOPRINE [Suspect]
     Indication: RENAL TRANSPLANT
  3. PREDNISONE [Suspect]
     Indication: RENAL TRANSPLANT

REACTIONS (5)
  - CHRONIC ALLOGRAFT NEPHROPATHY [None]
  - GLOMERULONEPHRITIS [None]
  - KIDNEY TRANSPLANT REJECTION [None]
  - LYMPHOCELE [None]
  - URINARY TRACT INFECTION [None]
